FAERS Safety Report 5059117-3 (Version None)
Quarter: 2006Q3

REPORT INFORMATION
  Report Type: 
  Country: None (occurrence: None)
  Receive Date: 20060718
  Receipt Date: 20060703
  Transmission Date: 20061208
  Serious: Yes (Hospitalization)
  Sender: FDA-Public Use
  Company Number: 2006PV016862

PATIENT
  Age: 48 Year
  Sex: Male

DRUGS (4)
  1. BYETTA [Suspect]
     Indication: DIABETES MELLITUS
     Dosage: 5 MCG; BID;
  2. AVANDIA [Concomitant]
  3. LANTUS [Concomitant]
  4. INSULIN [Concomitant]

REACTIONS (3)
  - ARTHRALGIA [None]
  - DRUG INEFFECTIVE [None]
  - INJECTION SITE HAEMORRHAGE [None]
